FAERS Safety Report 8331433-9 (Version None)
Quarter: 2012Q2

REPORT INFORMATION
  Report Type: 
  Country: None (occurrence: None)
  Receive Date: 20120502
  Receipt Date: 20120418
  Transmission Date: 20120825
  Serious: No
  Sender: FDA-Public Use
  Company Number: US-AMGEN-USASP2012024639

PATIENT
  Age: 30 Year
  Sex: Male

DRUGS (1)
  1. ENBREL [Suspect]
     Indication: PSORIASIS
     Dosage: 50 MG, 2 TIMES/WK
     Dates: start: 20120127

REACTIONS (8)
  - PYREXIA [None]
  - LOWER RESPIRATORY TRACT INFECTION [None]
  - CHILLS [None]
  - DYSPNOEA [None]
  - RESPIRATORY TRACT CONGESTION [None]
  - PAIN [None]
  - DYSPHONIA [None]
  - SINUSITIS [None]
